FAERS Safety Report 8533807-X (Version None)
Quarter: 2012Q3

REPORT INFORMATION
  Report Type: 
  Country: None (occurrence: None)
  Receive Date: 20120724
  Receipt Date: 20120719
  Transmission Date: 20120928
  Serious: Yes (Other)
  Sender: FDA-Public Use
  Company Number: US-009507513-1206USA02119

PATIENT

DRUGS (21)
  1. JANUVIA [Suspect]
     Indication: TYPE 2 DIABETES MELLITUS
     Dosage: 50 MG, QD
     Route: 048
  2. FLUTICASONE PROPIONATE [Concomitant]
     Dosage: 2 DF, HS
  3. GLIPIZIDE [Concomitant]
     Dosage: 2 MG, TID
     Route: 048
  4. VICODIN [Concomitant]
     Dosage: 1 PO, Q6H PRN
     Route: 048
  5. ASPIRIN [Concomitant]
     Dosage: 325 MG, QD
     Route: 048
  6. CYANOCOBALAMIN [Concomitant]
     Dosage: 1000 IU, QD
     Route: 048
  7. LANTUS [Concomitant]
     Dosage: 65 IU, BID
     Route: 058
  8. METFORMIN HYDROCHLORIDE [Concomitant]
     Dosage: 500 MG, BID
     Route: 048
  9. LISINOPRIL AND HYDROCHLOROTHIAZIDE [Concomitant]
     Dosage: 12.5MG/20 MG
     Route: 048
  10. PRINIVIL [Concomitant]
  11. POTASSIUM CHLORIDE [Concomitant]
     Dosage: 10 MEQ, QD
     Route: 048
  12. LASIX [Concomitant]
     Dosage: 20 MG, QD
     Route: 048
  13. VITAMINS (UNSPECIFIED) [Concomitant]
     Dosage: UNK, QD
     Route: 048
  14. TESTOSTERONE [Concomitant]
     Dosage: 1 ML, Q 2 WKS
     Route: 030
  15. VALTREX [Concomitant]
     Dosage: 1000 MG, QD, PRN
  16. LIPITOR [Concomitant]
     Dosage: 5 MG, QD
     Route: 048
  17. HUMALOG [Concomitant]
     Dosage: 4 IU, UNK
     Route: 058
  18. LOVAZA [Concomitant]
     Dosage: 1000 MG, BID
     Route: 048
  19. LORATADINE [Concomitant]
     Dosage: 10 MG, QD, PRN
     Route: 048
  20. TRILIPIX [Concomitant]
     Dosage: 100, QD
     Route: 048
  21. CHOLECALCIFEROL [Concomitant]
     Dosage: 1000 IU, BID
     Route: 048

REACTIONS (1)
  - PANCREATITIS ACUTE [None]
